FAERS Safety Report 17697187 (Version 2)
Quarter: 2020Q4

REPORT INFORMATION
  Report Type: Spontaneous
  Country: US (occurrence: US)
  Receive Date: 20200423
  Receipt Date: 20201113
  Transmission Date: 20210113
  Serious: Yes (Other)
  Sender: FDA-Public Use
  Company Number: US-GILEAD-2020-0460240

PATIENT
  Age: 56 Year
  Sex: Female

DRUGS (2)
  1. DESCOVY [Concomitant]
     Active Substance: EMTRICITABINE\TENOFOVIR ALAFENAMIDE FUMARATE
  2. ATRIPLA [Suspect]
     Active Substance: EFAVIRENZ\EMTRICITABINE\TENOFOVIR DISOPROXIL FUMARATE
     Indication: HIV INFECTION
     Dosage: UNK
     Route: 048
     Dates: start: 201001, end: 202001

REACTIONS (9)
  - Osteonecrosis [Unknown]
  - Economic problem [Unknown]
  - Multiple fractures [Not Recovered/Not Resolved]
  - Tooth loss [Unknown]
  - Osteopenia [Unknown]
  - Emotional distress [Unknown]
  - Pain [Unknown]
  - Bone loss [Unknown]
  - Bone density decreased [Not Recovered/Not Resolved]

NARRATIVE: CASE EVENT DATE: 201601
